FAERS Safety Report 8988729 (Version 1)
Quarter: 2012Q4

REPORT INFORMATION
  Report Type: Spontaneous
  Country: US (occurrence: None)
  Receive Date: 20121218
  Receipt Date: 20121218
  Transmission Date: 20130627
  Serious: Yes (Hospitalization)
  Sender: FDA-Public Use
  Company Number: UTC-026560

PATIENT
  Age: 60 Year
  Sex: Female
  Weight: 63.63 kg

DRUGS (8)
  1. REMODULIN (2.5 MILLIGRAM/MILLILITERS, INJECTION FOR INFUSION) (TREPROSTINIL SODIUM) [Suspect]
     Indication: PULMONARY HYPERTENSION
     Dosage: (1 in 1 min)
     Route: 041
     Dates: start: 20120725, end: 201212
  2. REMODULIN (2.5 MILLIGRAM/MILLILITERS, INJECTION FOR INFUSION) (TREPROSTINIL SODIUM) [Suspect]
     Indication: PRIMARY PULMONARY HYPERTENSION
     Dosage: (1 in 1 min)
     Route: 041
     Dates: start: 20120725, end: 201212
  3. REMODULIN (2.5 MILLIGRAM/MILLILITERS, INJECTION FOR INFUSION) (TREPROSTINIL SODIUM) [Suspect]
     Indication: PULMONARY HYPERTENSION
     Dosage: 46.08 ug/kg (0.032 ug/kg, 1 in 1 min)
     Route: 041
     Dates: start: 201212
  4. REMODULIN (2.5 MILLIGRAM/MILLILITERS, INJECTION FOR INFUSION) (TREPROSTINIL SODIUM) [Suspect]
     Indication: PRIMARY PULMONARY HYPERTENSION
     Dosage: 46.08 ug/kg (0.032 ug/kg, 1 in 1 min)
     Route: 041
     Dates: start: 201212
  5. COUMADIN (WARFARIN SODIUM) [Concomitant]
  6. REVATIO (SILDENAFIL CITRATE) [Concomitant]
  7. TRACLEER (BOSENTAN) [Concomitant]
  8. DIGOXIN [Concomitant]

REACTIONS (4)
  - Vomiting [None]
  - Nausea [None]
  - Diarrhoea [None]
  - Treatment noncompliance [None]
